FAERS Safety Report 16194970 (Version 2)
Quarter: 2019Q4

REPORT INFORMATION
  Report Type: Spontaneous
  Country: US (occurrence: US)
  Receive Date: 20190415
  Receipt Date: 20191011
  Transmission Date: 20200122
  Serious: Yes (Hospitalization, Other)
  Sender: FDA-Public Use
  Company Number: US-SUN PHARMACEUTICAL INDUSTRIES LTD-2019R1-205197

PATIENT
  Age: 89 Year
  Sex: Male

DRUGS (1)
  1. FUROSEMIDE. [Suspect]
     Active Substance: FUROSEMIDE
     Indication: DIASTOLIC DYSFUNCTION
     Dosage: UNK
     Route: 065

REACTIONS (5)
  - Pemphigoid [Unknown]
  - Troponin T increased [Unknown]
  - Septic shock [Unknown]
  - Ejection fraction decreased [Unknown]
  - Acute respiratory failure [Unknown]
